FAERS Safety Report 13945950 (Version 2)
Quarter: 2017Q3

REPORT INFORMATION
  Report Type: Spontaneous
  Country: US (occurrence: US)
  Receive Date: 20170907
  Receipt Date: 20170926
  Transmission Date: 20171128
  Serious: Yes (Hospitalization)
  Sender: FDA-Public Use
  Company Number: US-JNJCP-30000403839

PATIENT
  Sex: Female
  Weight: 63 kg

DRUGS (3)
  1. JOHNSONS BABY PURE CORNSTARCH MEDICATED [Suspect]
     Active Substance: ZINC OXIDE
     Indication: PRODUCT USED FOR UNKNOWN INDICATION
     Dosage: LIBERAL AMOUNT, ONCE A DAY AFTER SHOWER
     Route: 061
  2. B12 SHOTS [Concomitant]
     Active Substance: CYANOCOBALAMIN
     Indication: ANAEMIA
  3. JOHNSONS BABY PURE CORNSTARCH MEDICATED [Suspect]
     Active Substance: ZINC OXIDE
     Indication: PRODUCT USED FOR UNKNOWN INDICATION
     Dosage: LIBERAL AMOUNT, ONCE A DAY AFTER SHOWER
     Route: 061

REACTIONS (1)
  - Ovarian cancer [Not Recovered/Not Resolved]

NARRATIVE: CASE EVENT DATE: 201703
